FAERS Safety Report 9795118 (Version 1)
Quarter: 2014Q1

REPORT INFORMATION
  Report Type: Spontaneous
  Country: US (occurrence: US)
  Receive Date: 20140103
  Receipt Date: 20140103
  Transmission Date: 20141002
  Serious: Yes (Other)
  Sender: FDA-Public Use
  Company Number: US-009507513-1312USA009246

PATIENT
  Age: 66 Year
  Sex: Female

DRUGS (3)
  1. DULERA [Suspect]
     Indication: BRONCHITIS
     Dosage: 2 PUFFS, ONCE
     Route: 055
     Dates: start: 20131218, end: 20131218
  2. PREDNISONE [Concomitant]
     Route: 048
  3. QVAR [Concomitant]

REACTIONS (6)
  - Erythema [Recovering/Resolving]
  - Hot flush [Recovering/Resolving]
  - Headache [Recovering/Resolving]
  - Rash [Recovering/Resolving]
  - Nausea [Recovering/Resolving]
  - Hypersensitivity [Recovering/Resolving]
